FAERS Safety Report 25351268 (Version 1)
Quarter: 2025Q2

REPORT INFORMATION
  Report Type: Spontaneous
  Country: US (occurrence: US)
  Receive Date: 20250523
  Receipt Date: 20250523
  Transmission Date: 20250716
  Serious: Yes (Life-Threatening)
  Sender: STRIDES
  Company Number: US-STRIDES ARCOLAB LIMITED-2024SP014823

PATIENT

DRUGS (3)
  1. DIAZEPAM [Interacting]
     Active Substance: DIAZEPAM
     Indication: Product used for unknown indication
     Route: 065
  2. MORPHINE [Interacting]
     Active Substance: MORPHINE
     Indication: Eye pain
     Route: 030
  3. MORPHINE [Interacting]
     Active Substance: MORPHINE
     Indication: Ulcerative keratitis

REACTIONS (2)
  - Respiratory depression [Unknown]
  - Drug interaction [Unknown]
